FAERS Safety Report 16827638 (Version 1)
Quarter: 2019Q3

REPORT INFORMATION
  Report Type: Spontaneous
  Country: US (occurrence: US)
  Receive Date: 20190919
  Receipt Date: 20190919
  Transmission Date: 20191005
  Serious: No
  Sender: FDA-Public Use
  Company Number: US-PFIZER INC-2019402841

PATIENT
  Age: 65 Year
  Sex: Female

DRUGS (3)
  1. MORPHINE SULFATE. [Suspect]
     Active Substance: MORPHINE SULFATE
     Dosage: UNK
  2. BACLOFEN. [Suspect]
     Active Substance: BACLOFEN
  3. CODEINE [Suspect]
     Active Substance: CODEINE

REACTIONS (2)
  - Hallucination [Unknown]
  - Drug hypersensitivity [Unknown]
